FAERS Safety Report 19686415 (Version 2)
Quarter: 2021Q3

REPORT INFORMATION
  Report Type: Spontaneous
  Country: US (occurrence: US)
  Receive Date: 20210811
  Receipt Date: 20210824
  Transmission Date: 20211014
  Serious: No
  Sender: FDA-Public Use
  Company Number: US-BIOGEN-2021BI01035246

PATIENT
  Age: 33 Year
  Sex: Male

DRUGS (2)
  1. SPINRAZA [Suspect]
     Active Substance: NUSINERSEN
     Route: 065
  2. SPINRAZA [Suspect]
     Active Substance: NUSINERSEN
     Indication: PRODUCT USED FOR UNKNOWN INDICATION
     Route: 065
     Dates: start: 20210720

REACTIONS (12)
  - Abdominal pain upper [Unknown]
  - Dizziness [Unknown]
  - Upper respiratory tract congestion [Not Recovered/Not Resolved]
  - Back pain [Recovered/Resolved]
  - Feeling abnormal [Unknown]
  - Muscle spasms [Unknown]
  - Hypoaesthesia [Unknown]
  - Headache [Unknown]
  - Neck pain [Recovered/Resolved]
  - Ear discomfort [Unknown]
  - Feeling of body temperature change [Unknown]
  - Ear congestion [Not Recovered/Not Resolved]

NARRATIVE: CASE EVENT DATE: 20210802
